FAERS Safety Report 6370079-9 (Version None)
Quarter: 2009Q3

REPORT INFORMATION
  Report Type: 
  Country: None (occurrence: None)
  Receive Date: 20090923
  Receipt Date: 20070726
  Transmission Date: 20100115
  Serious: Yes (Hospitalization, Other)
  Sender: FDA-Public Use
  Company Number: US-ASTRAZENECA-2006UW22189

PATIENT
  Age: 46 Year
  Sex: Female
  Weight: 93.4 kg

DRUGS (17)
  1. SEROQUEL [Suspect]
     Indication: DEPRESSION
     Route: 048
     Dates: start: 19970101, end: 20020101
  2. SEROQUEL [Suspect]
     Dosage: 25-300 MG
     Route: 048
     Dates: start: 19970101
  3. CLOZARIL [Concomitant]
     Dates: start: 19980101
  4. NAVANE [Concomitant]
     Dates: start: 19980101
  5. RISPERDAL [Concomitant]
     Dates: start: 19980101
  6. ZYPREXA [Concomitant]
     Dates: start: 19980101
  7. DEPAKOTE [Concomitant]
  8. REMERON [Concomitant]
  9. ASPIRIN [Concomitant]
  10. PROTONIX [Concomitant]
  11. NOVOLIN R [Concomitant]
  12. HUMALOG [Concomitant]
  13. NEURONTIN [Concomitant]
  14. AMBIEN [Concomitant]
  15. DILAUDID [Concomitant]
  16. LOPRESSOR [Concomitant]
  17. PRINIVIL [Concomitant]

REACTIONS (6)
  - DIABETES MELLITUS [None]
  - DIABETIC COMA [None]
  - DIABETIC KETOACIDOSIS [None]
  - KETOACIDOSIS [None]
  - NEUROLEPTIC MALIGNANT SYNDROME [None]
  - TARDIVE DYSKINESIA [None]
